FAERS Safety Report 25804954 (Version 1)
Quarter: 2025Q3

REPORT INFORMATION
  Report Type: Report from Study
  Country: CA (occurrence: CA)
  Receive Date: 20250916
  Receipt Date: 20250916
  Transmission Date: 20251020
  Serious: Yes (Other)
  Sender: CELLTRION
  Company Number: CA-CELLTRION INC.-2025CA032478

PATIENT

DRUGS (2)
  1. ADALIMUMAB [Suspect]
     Active Substance: ADALIMUMAB
     Indication: Crohn^s disease
     Dosage: 160.0 MILLIGRAM, 1 EVERY 2 WEEKS
  2. ADALIMUMAB [Suspect]
     Active Substance: ADALIMUMAB

REACTIONS (3)
  - Seizure [Recovered/Resolved]
  - Off label use [Recovered/Resolved]
  - Overdose [Unknown]
